FAERS Safety Report 5033139-0 (Version None)
Quarter: 2006Q2

REPORT INFORMATION
  Report Type: 
  Country: None (occurrence: None)
  Receive Date: 20060622
  Receipt Date: 20060612
  Transmission Date: 20061013
  Serious: Yes (Disabling, Other)
  Sender: FDA-Public Use
  Company Number: 2006AC01112

PATIENT
  Age: 72 Year
  Sex: Male

DRUGS (3)
  1. LIGNOCAINE [Suspect]
     Indication: LOCAL ANAESTHESIA
  2. BUPIVACAINE [Suspect]
     Indication: LOCAL ANAESTHESIA
  3. HYALURONIDASE [Suspect]
     Indication: LOCAL ANAESTHESIA

REACTIONS (7)
  - DIPLOPIA [None]
  - MUSCLE ATROPHY [None]
  - MUSCLE FIBROSIS [None]
  - MUSCLE INJURY [None]
  - MUSCLE TIGHTNESS [None]
  - STRABISMUS [None]
  - VISION BLURRED [None]
